FAERS Safety Report 24841974 (Version 1)
Quarter: 2025Q1

REPORT INFORMATION
  Report Type: Spontaneous
  Country: JP (occurrence: JP)
  Receive Date: 20250114
  Receipt Date: 20250114
  Transmission Date: 20250409
  Serious: Yes (Other)
  Sender: JOHNSON AND JOHNSON
  Company Number: JP-JNJFOC-20250142786

PATIENT
  Age: 8 Decade
  Sex: Male

DRUGS (1)
  1. ERLEADA [Suspect]
     Active Substance: APALUTAMIDE
     Indication: Product used for unknown indication
     Route: 048
     Dates: start: 20241023, end: 2024

REACTIONS (2)
  - Rash [Recovering/Resolving]
  - Enanthema [Unknown]

NARRATIVE: CASE EVENT DATE: 20240101
